FAERS Safety Report 9542386 (Version 1)
Quarter: 2013Q3

REPORT INFORMATION
  Report Type: Spontaneous
  Country: US (occurrence: US)
  Receive Date: 20130923
  Receipt Date: 20130923
  Transmission Date: 20140515
  Serious: No
  Sender: FDA-Public Use
  Company Number: US-BAYER-2013-114516

PATIENT
  Age: 84 Year
  Sex: Male
  Weight: 79.37 kg

DRUGS (2)
  1. ALEVE CAPLET [Suspect]
     Indication: ANALGESIC THERAPY
     Dosage: UNK
     Route: 048
     Dates: start: 2013, end: 2013
  2. BAYER EXTRA STRENGTH BACK + BODY PAIN [Suspect]
     Indication: ANALGESIC THERAPY
     Dosage: 0.5 DF, BID
     Route: 048
     Dates: start: 2013

REACTIONS (3)
  - Abdominal pain upper [Not Recovered/Not Resolved]
  - Incorrect dose administered [None]
  - Incorrect drug administration duration [None]
